FAERS Safety Report 4802466-1 (Version None)
Quarter: 2005Q4

REPORT INFORMATION
  Report Type: 
  Country: None (occurrence: None)
  Receive Date: 20051011
  Receipt Date: 20050930
  Transmission Date: 20060501
  Serious: Yes (Hospitalization)
  Sender: FDA-Public Use
  Company Number: 2005126650

PATIENT
  Age: 72 Year
  Sex: Female
  Weight: 54.5 kg

DRUGS (7)
  1. ZOLOFT [Suspect]
     Indication: DEPRESSION
     Dosage: 50 MG (50 MG, 1 IN 1 D)
  2. AMBIEN [Suspect]
     Indication: INSOMNIA
     Dosage: 10 MG (10 MG, 1 IN 1 D), ORAL
     Route: 048
     Dates: start: 20040101
  3. TYLENOL W/ CODEINE NO. 3 [Concomitant]
  4. ROFECOXIB [Concomitant]
  5. AMLODIPINE [Concomitant]
  6. ATENOLOL [Concomitant]
  7. PREVACID [Concomitant]

REACTIONS (5)
  - DRUG INTERACTION [None]
  - HALLUCINATION, AUDITORY [None]
  - HALLUCINATION, VISUAL [None]
  - HYPOALBUMINAEMIA [None]
  - MENTAL STATUS CHANGES [None]
